FAERS Safety Report 10982934 (Version 1)
Quarter: 2015Q1

REPORT INFORMATION
  Report Type: Spontaneous
  Country: IT (occurrence: None)
  Receive Date: 20150302
  Receipt Date: 20150302
  Transmission Date: 20150721
  Serious: Yes (Hospitalization)
  Sender: FDA-Public Use
  Company Number: 2014SYM00147

PATIENT
  Age: 85 Year
  Sex: Female

DRUGS (2)
  1. ACEON [Suspect]
     Active Substance: PERINDOPRIL ERBUMINE
     Indication: HYPERTENSION
     Route: 048
  2. TACHIDOL (CODEINE PHOSPHATE, PARACETAMOL) [Concomitant]

REACTIONS (1)
  - Angioedema [None]

NARRATIVE: CASE EVENT DATE: 20140906
